FAERS Safety Report 17103255 (Version 1)
Quarter: 2019Q4

REPORT INFORMATION
  Report Type: Spontaneous
  Country: US (occurrence: US)
  Receive Date: 20191107
  Receipt Date: 20191107
  Transmission Date: 20200122
  Serious: No
  Sender: FDA-Public Use
  Company Number: None

PATIENT
  Age: 24 Year
  Sex: Female

DRUGS (1)
  1. REMICADE [Suspect]
     Active Substance: INFLIXIMAB
     Dosage: ?          OTHER DOSE:10MG/KG;?
     Route: 042
     Dates: start: 2019

REACTIONS (1)
  - Off label use [None]

NARRATIVE: CASE EVENT DATE: 20191107
